FAERS Safety Report 8615145-X (Version None)
Quarter: 2012Q3

REPORT INFORMATION
  Report Type: 
  Country: None (occurrence: None)
  Receive Date: 20120814
  Receipt Date: 20120814
  Transmission Date: 20120928
  Serious: Yes (Hospitalization)
  Sender: FDA-Public Use
  Company Number: None

PATIENT
  Age: 56 Year
  Sex: Male
  Weight: 147.2 kg

DRUGS (2)
  1. FUROSEMIDE [Suspect]
     Indication: RENAL FAILURE ACUTE
     Dosage: 80 MG TID PO
     Route: 048
     Dates: start: 20091001
  2. METOLAZONE [Suspect]
     Indication: RENAL FAILURE ACUTE
     Dosage: 2.5 MG EVERY DAY PO
     Route: 048
     Dates: start: 20110916, end: 20111004

REACTIONS (10)
  - DIZZINESS [None]
  - INAPPROPRIATE SCHEDULE OF DRUG ADMINISTRATION [None]
  - BLOOD UREA INCREASED [None]
  - CHRONIC OBSTRUCTIVE PULMONARY DISEASE [None]
  - CARDIAC FAILURE CONGESTIVE [None]
  - OXYGEN SATURATION DECREASED [None]
  - URINE OUTPUT DECREASED [None]
  - BLOOD CREATININE INCREASED [None]
  - CHEST DISCOMFORT [None]
  - LETHARGY [None]
